FAERS Safety Report 6803718-6 (Version None)
Quarter: 2010Q2

REPORT INFORMATION
  Report Type: 
  Country: None (occurrence: None)
  Receive Date: 20100628
  Receipt Date: 20100621
  Transmission Date: 20101027
  Serious: Yes (Life-Threatening, Hospitalization)
  Sender: FDA-Public Use
  Company Number: FR-KINGPHARMUSA00001-K201000776

PATIENT
  Age: 47 Year
  Sex: Female

DRUGS (8)
  1. ALTACE [Suspect]
     Dosage: 5 MG, QD
     Route: 048
     Dates: start: 20080201, end: 20100525
  2. CELLCEPT [Suspect]
     Dosage: 1.25 G, BID
     Route: 048
     Dates: start: 20100101, end: 20100525
  3. ESOMEPRAZOLE [Suspect]
     Dosage: 40 MG, QD
     Route: 048
     Dates: end: 20100525
  4. AMOXICILLIN [Suspect]
     Indication: INFECTION
     Dosage: 1 G, BID
     Route: 048
     Dates: start: 20100518, end: 20100521
  5. NEORAL [Concomitant]
     Dosage: UNK
     Dates: start: 20100101
  6. PREVISCAN [Concomitant]
     Dosage: UNK
     Dates: start: 20100215
  7. EPOETIN BETA [Concomitant]
     Dosage: UNK
     Dates: start: 20100201, end: 20100506
  8. PRAVASTATIN SODIUM [Concomitant]
     Dosage: UNK
     Dates: start: 20080201

REACTIONS (8)
  - AGRANULOCYTOSIS [None]
  - COMPLICATIONS OF TRANSPLANTED KIDNEY [None]
  - COUGH [None]
  - LYMPHOPENIA [None]
  - NEUTROPENIA [None]
  - PRODUCTIVE COUGH [None]
  - PYREXIA [None]
  - RHINORRHOEA [None]
